FAERS Safety Report 7704963-8 (Version None)
Quarter: 2011Q3

REPORT INFORMATION
  Report Type: 
  Country: None (occurrence: None)
  Receive Date: 20110823
  Receipt Date: 20110819
  Transmission Date: 20111222
  Serious: No
  Sender: FDA-Public Use
  Company Number: US-PFIZER INC-2011192354

PATIENT
  Sex: Female
  Weight: 70.295 kg

DRUGS (2)
  1. ESTRING [Suspect]
     Indication: UTERINE DISORDER
     Dosage: UNK
     Route: 067
     Dates: start: 20110101
  2. ACETYLSALICYLIC ACID [Concomitant]
     Dosage: UNK

REACTIONS (3)
  - THYROID DISORDER [None]
  - BLOOD CHOLESTEROL ABNORMAL [None]
  - BLOOD PRESSURE ABNORMAL [None]
